FAERS Safety Report 5046730-2 (Version None)
Quarter: 2006Q2

REPORT INFORMATION
  Report Type: 
  Country: None (occurrence: None)
  Receive Date: 20060601
  Receipt Date: 20060314
  Transmission Date: 20061013
  Serious: No
  Sender: FDA-Public Use
  Company Number: 2006PV010243

PATIENT
  Age: 62 Year
  Sex: Female
  Weight: 86.1834 kg

DRUGS (9)
  1. BYETTA [Suspect]
     Indication: DIABETES MELLITUS NON-INSULIN-DEPENDENT
     Dosage: SEE IMAGE
     Route: 058
     Dates: start: 20060208, end: 20060309
  2. BYETTA [Suspect]
     Indication: DIABETES MELLITUS NON-INSULIN-DEPENDENT
     Dosage: SEE IMAGE
     Route: 058
     Dates: start: 20060310, end: 20060312
  3. BYETTA [Suspect]
     Indication: DIABETES MELLITUS NON-INSULIN-DEPENDENT
     Dosage: SEE IMAGE
     Route: 058
     Dates: start: 20060313
  4. METFORMIN [Concomitant]
  5. LISINOPRIL [Concomitant]
  6. HYDROCHLOROTHIAZIDE [Concomitant]
  7. GEMFIBROZIL [Concomitant]
  8. SOY SUPPLEMENTS [Concomitant]
  9. PRILOSEC [Concomitant]

REACTIONS (8)
  - ABDOMINAL PAIN UPPER [None]
  - BLOOD GLUCOSE INCREASED [None]
  - DECREASED APPETITE [None]
  - MALAISE [None]
  - NERVOUSNESS [None]
  - STOMACH DISCOMFORT [None]
  - VOMITING [None]
  - WEIGHT DECREASED [None]
